FAERS Safety Report 5451264-7 (Version None)
Quarter: 2007Q3

REPORT INFORMATION
  Report Type: 
  Country: None (occurrence: None)
  Receive Date: 20070913
  Receipt Date: 20070903
  Transmission Date: 20080115
  Serious: Yes (Hospitalization)
  Sender: FDA-Public Use
  Company Number: FR-JNJFOC-20070900483

PATIENT
  Age: 42 Year
  Sex: Male

DRUGS (2)
  1. REMICADE [Suspect]
     Indication: COLITIS ULCERATIVE
     Route: 042
  2. HYDROCORTISONE [Concomitant]
     Indication: PREMEDICATION

REACTIONS (6)
  - BACK PAIN [None]
  - CHILLS [None]
  - INFUSION RELATED REACTION [None]
  - LEUKOCYTOSIS [None]
  - PYREXIA [None]
  - TACHYCARDIA [None]
